FAERS Safety Report 18567094 (Version 2)
Quarter: 2021Q1

REPORT INFORMATION
  Report Type: Spontaneous
  Country: GT (occurrence: GT)
  Receive Date: 20201202
  Receipt Date: 20210111
  Transmission Date: 20210419
  Serious: Yes (Death, Other)
  Sender: FDA-Public Use
  Company Number: GT-ROCHE-2721862

PATIENT
  Age: 76 Year
  Sex: Female

DRUGS (1)
  1. TECENTRIQ [Suspect]
     Active Substance: ATEZOLIZUMAB
     Indication: BILE DUCT CANCER
     Dosage: TECENTRIQ 1200MG / 20ML VIAL FOR IV INFUSION, 20/NOV/2020: IV INFUSION END TIME 5:00 PM
     Route: 041
     Dates: start: 20201120

REACTIONS (4)
  - Hepatic failure [Fatal]
  - Off label use [Unknown]
  - Ascites [Unknown]
  - Intentional product use issue [Unknown]

NARRATIVE: CASE EVENT DATE: 20201126
